FAERS Safety Report 15819732 (Version 1)
Quarter: 2019Q1

REPORT INFORMATION
  Report Type: Report from Study
  Country: US (occurrence: US)
  Receive Date: 20190114
  Receipt Date: 20190114
  Transmission Date: 20190417
  Serious: No
  Sender: FDA-Public Use
  Company Number: PHEH2019US001347

PATIENT
  Age: 55 Year
  Sex: Female

DRUGS (1)
  1. COSENTYX [Suspect]
     Active Substance: SECUKINUMAB
     Indication: PSORIASIS
     Dosage: 300 MG, QW
     Route: 058
     Dates: start: 20181120

REACTIONS (5)
  - Upper respiratory tract congestion [Unknown]
  - Sinus congestion [Unknown]
  - Cough [Unknown]
  - Upper-airway cough syndrome [Unknown]
  - Tinnitus [Unknown]

NARRATIVE: CASE EVENT DATE: 20181226
